FAERS Safety Report 10152472 (Version 4)
Quarter: 2020Q1

REPORT INFORMATION
  Report Type: Spontaneous
  Country: US (occurrence: US)
  Receive Date: 20140505
  Receipt Date: 20200304
  Transmission Date: 20200409
  Serious: No
  Sender: FDA-Public Use
  Company Number: US-TEVA-397857USA

PATIENT
  Age: 29 Year
  Sex: Male

DRUGS (2)
  1. CLARAVIS [Suspect]
     Active Substance: ISOTRETINOIN
     Route: 065
  2. CLARAVIS [Suspect]
     Active Substance: ISOTRETINOIN
     Route: 065
     Dates: start: 20130114

REACTIONS (1)
  - Blepharitis [Recovered/Resolved]

NARRATIVE: CASE EVENT DATE: 20130415
